FAERS Safety Report 11673906 (Version 1)
Quarter: 2015Q4

REPORT INFORMATION
  Report Type: Spontaneous
  Country: TR (occurrence: TR)
  Receive Date: 20151028
  Receipt Date: 20151028
  Transmission Date: 20160304
  Serious: Yes (Other)
  Sender: FDA-Public Use
  Company Number: TR-WATSON-2015-23050

PATIENT
  Age: 50 Year
  Sex: Female

DRUGS (2)
  1. LIDOCAINE HYDROCHLORIDE (WATSON LABORATORIES) [Suspect]
     Active Substance: LIDOCAINE HYDROCHLORIDE
     Indication: LOCAL ANAESTHESIA
     Dosage: 200 MG, TOTAL
     Route: 030
  2. BUPIVACAINE [Suspect]
     Active Substance: BUPIVACAINE
     Indication: LOCAL ANAESTHESIA
     Dosage: 100 MG, TOTAL
     Route: 030

REACTIONS (2)
  - Paralysis [Recovered/Resolved]
  - Overdose [Recovered/Resolved]
